FAERS Safety Report 6505186-0 (Version None)
Quarter: 2009Q4

REPORT INFORMATION
  Report Type: 
  Country: None (occurrence: None)
  Receive Date: 20091218
  Receipt Date: 20091210
  Transmission Date: 20100525
  Serious: Yes (Other)
  Sender: FDA-Public Use
  Company Number: JP-JNJFOC-20091203747

PATIENT

DRUGS (2)
  1. ITRIZOLE [Suspect]
     Indication: ORAL CANDIDIASIS
     Route: 048
  2. UNKNOWN MEDICATION [Concomitant]
     Route: 065

REACTIONS (3)
  - DYSPNOEA [None]
  - OEDEMA MOUTH [None]
  - RESPIRATORY DISTRESS [None]
